FAERS Safety Report 10161958 (Version 1)
Quarter: 2014Q2

REPORT INFORMATION
  Report Type: Spontaneous
  Country: US (occurrence: None)
  Receive Date: 20140508
  Receipt Date: 20140508
  Transmission Date: 20141212
  Serious: Yes (Hospitalization)
  Sender: FDA-Public Use
  Company Number: None

PATIENT
  Age: 65 Year
  Sex: Female

DRUGS (1)
  1. NEUPOGEN PFS 300MCG AMGEN [Suspect]
     Indication: NEUTROPENIA
     Dosage: 300 MCG/DAILY X 7 DAYS Q 2 WEEKS SUBCUTANEOUS
     Dates: start: 20140222, end: 20140422

REACTIONS (2)
  - Neutropenia [None]
  - Convulsion [None]
